FAERS Safety Report 26079096 (Version 1)
Quarter: 2025Q4

REPORT INFORMATION
  Report Type: Spontaneous
  Country: US (occurrence: US)
  Receive Date: 20251123
  Receipt Date: 20251123
  Transmission Date: 20260117
  Serious: No
  Sender: GALPHARM INTERNATIONAL
  Company Number: US-PERRIGO-25US005450

PATIENT
  Sex: Female

DRUGS (1)
  1. OPILL [Suspect]
     Active Substance: NORGESTREL
     Indication: Product used for unknown indication
     Dosage: UNK, UNK
     Route: 048
     Dates: start: 20250306

REACTIONS (7)
  - Vaginal discharge [Unknown]
  - Heavy menstrual bleeding [Not Recovered/Not Resolved]
  - Menstruation delayed [Unknown]
  - Intermenstrual bleeding [Not Recovered/Not Resolved]
  - Dysmenorrhoea [Unknown]
  - Hypomenorrhoea [Recovered/Resolved]
  - Polymenorrhoea [Recovered/Resolved]

NARRATIVE: CASE EVENT DATE: 20250301
